FAERS Safety Report 8282504-7 (Version None)
Quarter: 2012Q2

REPORT INFORMATION
  Report Type: 
  Country: None (occurrence: None)
  Receive Date: 20120413
  Receipt Date: 20120410
  Transmission Date: 20120825
  Serious: Yes (Hospitalization, Other)
  Sender: FDA-Public Use
  Company Number: BO-PFIZER INC-2012081750

PATIENT
  Age: 52 Year
  Sex: Male

DRUGS (2)
  1. CELEBREX [Suspect]
     Indication: INFLAMMATION
     Dosage: 200 MG, 1X/DAY
     Route: 048
     Dates: start: 20111201
  2. CELEBREX [Suspect]
     Dosage: 200 MG, 1X/DAY
     Route: 048
     Dates: start: 20120323, end: 20120323

REACTIONS (3)
  - RESPIRATORY FAILURE [None]
  - ANAPHYLACTIC SHOCK [None]
  - DERMATITIS EXFOLIATIVE [None]
